FAERS Safety Report 10245978 (Version 6)
Quarter: 2014Q4

REPORT INFORMATION
  Report Type: Report from Study
  Country: AU (occurrence: AU)
  Receive Date: 20140619
  Receipt Date: 20141127
  Transmission Date: 20150528
  Serious: Yes (Death, Other)
  Sender: FDA-Public Use
  Company Number: PHHY2013AU049713

PATIENT
  Age: 58 Year
  Sex: Male

DRUGS (5)
  1. CLOZARIL [Suspect]
     Active Substance: CLOZAPINE
     Indication: SCHIZOPHRENIA
     Dosage: 125 MG
     Route: 048
     Dates: start: 20081126, end: 20130430
  2. PANTOPRAZOLE [Concomitant]
     Active Substance: PANTOPRAZOLE SODIUM
     Indication: PRODUCT USED FOR UNKNOWN INDICATION
     Dosage: 40 MG, BID, MORE THAN 3 YEARS
     Route: 048
  3. OLANZAPINE. [Concomitant]
     Active Substance: OLANZAPINE
     Indication: SCHIZOPHRENIA
     Dosage: 30 MG, NOCTE
     Route: 048
  4. CLOZARIL [Suspect]
     Active Substance: CLOZAPINE
     Dosage: 125 MG, BID
     Route: 048
     Dates: start: 20140422
  5. DIAZEPAM. [Concomitant]
     Active Substance: DIAZEPAM
     Indication: AGITATION
     Dosage: 5 MG, QD
     Route: 048

REACTIONS (13)
  - Aspiration [Fatal]
  - Thrombosis [Unknown]
  - Laryngeal disorder [Unknown]
  - Pharyngeal disorder [Unknown]
  - Eating disorder [Unknown]
  - General physical health deterioration [Unknown]
  - Cardiac arrest [Fatal]
  - Circulatory collapse [Unknown]
  - Vomiting [Unknown]
  - Haematemesis [Fatal]
  - Respiratory arrest [Fatal]
  - Laryngeal stenosis [Unknown]
  - Dysphagia [Unknown]

NARRATIVE: CASE EVENT DATE: 20140722
